FAERS Safety Report 7328886-1 (Version None)
Quarter: 2011Q1

REPORT INFORMATION
  Report Type: 
  Country: None (occurrence: None)
  Receive Date: 20110225
  Receipt Date: 20110225
  Transmission Date: 20110831
  Serious: Yes (Other)
  Sender: FDA-Public Use
  Company Number: None

PATIENT
  Age: 53 Year
  Sex: Female
  Weight: 72.5755 kg

DRUGS (1)
  1. CEFPROZIL [Suspect]
     Indication: BACTERIAL INFECTION
     Dosage: 1 TABLET 250 MG (1 TABLET ONLY)
     Dates: start: 20110217, end: 20110217

REACTIONS (2)
  - DIARRHOEA [None]
  - VOMITING [None]
